FAERS Safety Report 12350465 (Version 4)
Quarter: 2017Q2

REPORT INFORMATION
  Report Type: Spontaneous
  Country: JP (occurrence: JP)
  Receive Date: 20160510
  Receipt Date: 20170616
  Transmission Date: 20170830
  Serious: Yes (Hospitalization, Other)
  Sender: FDA-Public Use
  Company Number: JP-GLAXOSMITHKLINE-JP2016JPN064589

PATIENT
  Age: 21 Year
  Sex: Female
  Weight: 47 kg

DRUGS (5)
  1. LAMICTAL [Suspect]
     Active Substance: LAMOTRIGINE
     Dosage: 50 MG, QD
     Route: 048
     Dates: start: 20160408, end: 20160421
  2. LAMICTAL [Suspect]
     Active Substance: LAMOTRIGINE
     Dosage: 50 MG, BID
     Route: 048
     Dates: start: 20160422, end: 20160422
  3. CALONAL [Concomitant]
     Active Substance: ACETAMINOPHEN
     Dosage: UNK
  4. SEDES [Concomitant]
  5. LAMICTAL [Suspect]
     Active Substance: LAMOTRIGINE
     Indication: EPILEPSY
     Dosage: 25 MG, QD
     Route: 048
     Dates: start: 20160325, end: 20160407

REACTIONS (13)
  - Skin degenerative disorder [Recovering/Resolving]
  - Erythema [Recovering/Resolving]
  - Lymphocyte morphology abnormal [Recovering/Resolving]
  - Eosinophil morphology abnormal [Recovering/Resolving]
  - Pyrexia [Recovering/Resolving]
  - Rash [Recovering/Resolving]
  - Drug eruption [Recovering/Resolving]
  - Skin oedema [Recovering/Resolving]
  - Lip swelling [Recovering/Resolving]
  - Rash maculo-papular [Recovering/Resolving]
  - Epidermal necrosis [Recovering/Resolving]
  - Lymphocytic infiltration [Recovering/Resolving]
  - Lymphadenopathy [Recovering/Resolving]

NARRATIVE: CASE EVENT DATE: 20160422
